FAERS Safety Report 14778313 (Version 2)
Quarter: 2018Q2

REPORT INFORMATION
  Report Type: Other
  Country: CA (occurrence: CA)
  Receive Date: 20180419
  Receipt Date: 20180422
  Transmission Date: 20180711
  Serious: Yes (Other)
  Sender: FDA-Public Use
  Company Number: CA-APOTEX-2018AP009864

PATIENT
  Sex: Male

DRUGS (2)
  1. DILTIAZEM. [Suspect]
     Active Substance: DILTIAZEM
     Indication: HYPERTENSION
     Route: 065
  2. DILTIAZEM. [Suspect]
     Active Substance: DILTIAZEM
     Indication: HEART RATE INCREASED

REACTIONS (4)
  - Product packaging issue [Recovered/Resolved]
  - Heart rate increased [Recovered/Resolved]
  - Hypertensive crisis [Recovered/Resolved]
  - Product dosage form issue [Recovered/Resolved]
